FAERS Safety Report 20704784 (Version 1)
Quarter: 2022Q2

REPORT INFORMATION
  Report Type: Spontaneous
  Country: US (occurrence: US)
  Receive Date: 20220413
  Receipt Date: 20220413
  Transmission Date: 20220721
  Serious: No
  Sender: FDA-Public Use
  Company Number: US-TEVA-2022-US-2020315

PATIENT
  Sex: Female

DRUGS (1)
  1. AJOVY [Suspect]
     Active Substance: FREMANEZUMAB-VFRM
     Dosage: 225 MG/1.5 ML,INJECTION (AUTOINJECTOR)
     Route: 058

REACTIONS (8)
  - Migraine [Unknown]
  - Pain [Unknown]
  - Mobility decreased [Unknown]
  - Device leakage [Unknown]
  - Device failure [Unknown]
  - Device malfunction [Unknown]
  - Incorrect dose administered by device [Unknown]
  - Adverse event [Unknown]
